FAERS Safety Report 21512350 (Version 2)
Quarter: 2022Q4

REPORT INFORMATION
  Report Type: Spontaneous
  Country: US (occurrence: US)
  Receive Date: 20221027
  Receipt Date: 20221202
  Transmission Date: 20230113
  Serious: No
  Sender: FDA-Public Use
  Company Number: US-BIOGEN-2022BI01118771

PATIENT
  Sex: Female

DRUGS (2)
  1. TYSABRI [Suspect]
     Active Substance: NATALIZUMAB
     Indication: Multiple sclerosis
     Route: 050
     Dates: start: 20180911
  2. TYSABRI [Suspect]
     Active Substance: NATALIZUMAB
     Route: 050

REACTIONS (7)
  - Prescribed underdose [Unknown]
  - Mobility decreased [Unknown]
  - Memory impairment [Unknown]
  - Chronic fatigue syndrome [Unknown]
  - Akinesia [Unknown]
  - Multiple sclerosis [Unknown]
  - Road traffic accident [Recovered/Resolved]
